FAERS Safety Report 12837787 (Version 3)
Quarter: 2018Q1

REPORT INFORMATION
  Report Type: Report from Study
  Country: UY (occurrence: UY)
  Receive Date: 20161012
  Receipt Date: 20180201
  Transmission Date: 20180508
  Serious: Yes (Other)
  Sender: FDA-Public Use
  Company Number: UY-ROCHE-1840914

PATIENT
  Sex: Female

DRUGS (4)
  1. XELODA [Suspect]
     Active Substance: CAPECITABINE
     Dosage: 3 TABLETS OF 500 MG EACH DAY
     Route: 065
  2. LANSOPRAZOL [Concomitant]
     Active Substance: LANSOPRAZOLE
  3. XELODA [Suspect]
     Active Substance: CAPECITABINE
     Indication: BREAST CANCER
     Route: 065
     Dates: start: 20160901
  4. LAPATINIB [Concomitant]
     Active Substance: LAPATINIB
     Indication: BREAST CANCER

REACTIONS (5)
  - Pain in extremity [Recovered/Resolved]
  - Skin tightness [Recovered/Resolved]
  - Peripheral swelling [Recovered/Resolved]
  - Skin exfoliation [Recovered/Resolved]
  - Dry skin [Recovered/Resolved]
